FAERS Safety Report 11647927 (Version 2)
Quarter: 2015Q4

REPORT INFORMATION
  Report Type: Spontaneous
  Country: US (occurrence: US)
  Receive Date: 20151021
  Receipt Date: 20151105
  Transmission Date: 20160304
  Serious: Yes (Other)
  Sender: FDA-Public Use
  Company Number: US-ACTAVIS-2015-22490

PATIENT
  Age: 16 Year
  Sex: Male

DRUGS (4)
  1. DOXYCYCLINE (ACTAVIS LABORATORIES FL) [Suspect]
     Active Substance: DOXYCYCLINE
     Indication: ANIMAL BITE
     Dosage: UNK
     Route: 065
  2. RABAVERT [Suspect]
     Active Substance: RABIES VIRUS STRAIN FLURY LEP ANTIGEN (PROPIOLACTONE INACTIVATED)
     Indication: RABIES IMMUNISATION
     Dosage: 3RD AND 4TH DOSES (PURIFIED CHICK EMBRYO CELL RABIES VACCINE) ON DAY 7 AND 14 RESPECTIVELY.
     Route: 030
  3. VERORAB [Suspect]
     Active Substance: RABIES VACCINE
     Indication: RABIES IMMUNISATION
     Dosage: FIRST AND 2ND DOSES OF RABIES VACCINE (PURIFIED VERO CELL RABIES VACCINE) ON DAY 0 AND DAY 3
     Route: 065
  4. RABIES IMMUNE GLOBULIN, HUMAN [Suspect]
     Active Substance: RABIES IMMUNE GLOBULIN (HUMAN)
     Indication: RABIES IMMUNISATION
     Dosage: RABIES IMMUNOGLOBULIN NEAR THE BITE SITES INTRAMUSCULARLY
     Route: 030

REACTIONS (1)
  - Immune thrombocytopenic purpura [Recovered/Resolved]

NARRATIVE: CASE EVENT DATE: 20150705
